FAERS Safety Report 5639904-0 (Version None)
Quarter: 2008Q1

REPORT INFORMATION
  Report Type: 
  Country: None (occurrence: None)
  Receive Date: 20080225
  Receipt Date: 20080219
  Transmission Date: 20080703
  Serious: Yes (Life-Threatening, Hospitalization)
  Sender: FDA-Public Use
  Company Number: B0508788A

PATIENT
  Age: 68 Year
  Sex: Male
  Weight: 98.7934 kg

DRUGS (5)
  1. ROSIGLITAZONE MALEATE [Suspect]
     Indication: DIABETES MELLITUS
     Dosage: 4MG, ORAL
     Route: 048
     Dates: start: 20060327, end: 20071201
  2. LEVOTHYROXINE SODIUM [Concomitant]
  3. FOSINOPRIL SODIUM [Concomitant]
  4. ROSUVASTATIN CALCIUM [Concomitant]
  5. METFORMIN HYDROCHLORIDE [Concomitant]

REACTIONS (1)
  - MYOCARDIAL INFARCTION [None]
